FAERS Safety Report 4808469-5 (Version None)
Quarter: 2005Q4

REPORT INFORMATION
  Report Type: 
  Country: None (occurrence: None)
  Receive Date: 20051025
  Receipt Date: 20051012
  Transmission Date: 20060501
  Serious: Yes (Hospitalization)
  Sender: FDA-Public Use
  Company Number: US-AMGEN-US154105

PATIENT
  Sex: Female
  Weight: 81.5 kg

DRUGS (6)
  1. NEULASTA [Suspect]
     Indication: CHEMOTHERAPY
     Route: 058
     Dates: start: 20050831
  2. RITUXAN [Concomitant]
     Dates: start: 20050716
  3. CYCLOPHOSPHAMIDE [Concomitant]
     Route: 042
     Dates: start: 20050716
  4. DOXORUBICIN HYDROCHLORIDE [Concomitant]
     Route: 042
     Dates: start: 20050716
  5. VINCRISTINE [Concomitant]
     Route: 042
     Dates: start: 20050716
  6. PREDNISONE TAB [Concomitant]
     Route: 042
     Dates: start: 20050716

REACTIONS (2)
  - FEBRILE NEUTROPENIA [None]
  - STREPTOCOCCAL SEPSIS [None]
